FAERS Safety Report 9616111 (Version 1)
Quarter: 2013Q4

REPORT INFORMATION
  Report Type: Spontaneous
  Country: US (occurrence: None)
  Receive Date: 20131010
  Receipt Date: 20131010
  Transmission Date: 20140711
  Serious: No
  Sender: FDA-Public Use
  Company Number: None

PATIENT
  Age: 80 Year
  Sex: Male
  Weight: 86.5 kg

DRUGS (2)
  1. ENOXAPARIN [Suspect]
     Route: 058
     Dates: start: 20130623, end: 20130719
  2. WARFARIN [Suspect]
     Route: 048
     Dates: start: 20130623, end: 20130719

REACTIONS (3)
  - Haemorrhage [None]
  - Anaemia [None]
  - Abdominal wall haematoma [None]
